FAERS Safety Report 12766967 (Version 1)
Quarter: 2016Q3

REPORT INFORMATION
  Report Type: Spontaneous
  Country: US (occurrence: US)
  Receive Date: 20160915
  Receipt Date: 20160915
  Transmission Date: 20161109
  Serious: No
  Sender: FDA-Public Use
  Company Number: None

PATIENT
  Sex: Female

DRUGS (1)
  1. EUFLEXXA [Suspect]
     Active Substance: HYALURONATE SODIUM
     Indication: OSTEOARTHRITIS
     Dosage: 1 SYRINGE WEEKLY FOR 3 WEEKS INTRA-ARTICULARLY TO LEFT KNEE
     Route: 014
     Dates: end: 20160611

REACTIONS (1)
  - Hypersensitivity [None]
